FAERS Safety Report 9665450 (Version 1)
Quarter: 2013Q4

REPORT INFORMATION
  Report Type: Spontaneous
  Country: US (occurrence: None)
  Receive Date: 20131031
  Receipt Date: 20131031
  Transmission Date: 20140711
  Serious: Yes (Hospitalization)
  Sender: FDA-Public Use
  Company Number: None

PATIENT
  Age: 58 Year
  Sex: Female
  Weight: 117 kg

DRUGS (14)
  1. PHENYTOIN [Suspect]
     Indication: CONVULSION PROPHYLAXIS
     Route: 042
     Dates: start: 20110810, end: 20110815
  2. ACETAMINOPHEN [Concomitant]
  3. CEFEPIME [Concomitant]
  4. DEXAMETHASONE [Concomitant]
  5. FENTANYL [Concomitant]
  6. FUROSEMIDE [Concomitant]
  7. HEPARIN [Concomitant]
  8. INSULIN ASPART/GLARGINE [Concomitant]
  9. LACTOBACILLUS [Concomitant]
  10. METOPROLOL [Concomitant]
     Dosage: ?
  11. MORPHINE [Concomitant]
  12. RANITIDINE [Concomitant]
  13. ROSUVASTATIN [Concomitant]
  14. PROPOFOL [Concomitant]

REACTIONS (1)
  - Drug reaction with eosinophilia and systemic symptoms [None]
